FAERS Safety Report 5192375-3 (Version None)
Quarter: 2006Q4

REPORT INFORMATION
  Report Type: 
  Country: None (occurrence: None)
  Receive Date: 20061227
  Receipt Date: 20061215
  Transmission Date: 20070319
  Serious: Yes (Disabling)
  Sender: FDA-Public Use
  Company Number: GB-PFIZER INC-2006154554

PATIENT
  Age: 81 Year
  Sex: Female

DRUGS (11)
  1. LYRICA [Suspect]
     Indication: NEURALGIA
     Route: 048
  2. AMARYL [Concomitant]
     Route: 048
  3. ARTHROTEC [Concomitant]
     Route: 048
  4. ASPIRIN [Concomitant]
     Route: 048
  5. BENDROFLUMETHIAZIDE [Concomitant]
     Route: 048
  6. CELIPROLOL [Concomitant]
     Route: 048
  7. CRESTOR [Concomitant]
     Route: 048
  8. OMEPRAZOLE [Concomitant]
     Route: 048
  9. ACETAMINOPHEN [Concomitant]
  10. REGULAN [Concomitant]
     Route: 048
  11. VITAMIN B COMPLEX CAP [Concomitant]
     Route: 048

REACTIONS (2)
  - LOSS OF CONSCIOUSNESS [None]
  - NOCTURIA [None]
